FAERS Safety Report 14148326 (Version 3)
Quarter: 2019Q2

REPORT INFORMATION
  Report Type: Spontaneous
  Country: DE (occurrence: DE)
  Receive Date: 20171101
  Receipt Date: 20190514
  Transmission Date: 20190711
  Serious: Yes (Disabling, Other)
  Sender: FDA-Public Use
  Company Number: DE-AUROBINDO-AUR-APL-2017-42394

PATIENT

DRUGS (1)
  1. BUCAIN SOLUTION FOR INJECTION [Suspect]
     Active Substance: BUPIVACAINE
     Indication: PAIN IN EXTREMITY
     Dosage: 0.5 MG, SINGLE DOSE
     Route: 050
     Dates: start: 20171017, end: 20171017

REACTIONS (5)
  - Hypoaesthesia [Recovered/Resolved]
  - Body temperature increased [Recovered/Resolved]
  - Product administration error [Unknown]
  - Monoplegia [Recovering/Resolving]
  - Nerve injury [Unknown]

NARRATIVE: CASE EVENT DATE: 20171017
